FAERS Safety Report 20328329 (Version 3)
Quarter: 2024Q1

REPORT INFORMATION
  Report Type: Spontaneous
  Country: JP (occurrence: JP)
  Receive Date: 20220112
  Receipt Date: 20240109
  Transmission Date: 20240410
  Serious: Yes (Hospitalization, Other)
  Sender: FDA-Public Use
  Company Number: JP-MLMSERVICE-20211227-3285540-1

PATIENT
  Age: 6 Decade
  Sex: Male
  Weight: 78 kg

DRUGS (12)
  1. LINEZOLID [Suspect]
     Active Substance: LINEZOLID
     Dosage: 600 MG, 2X/DAY (FREQ:12 H;DAY 27 TO DAY 40)
     Route: 042
  2. LINEZOLID [Suspect]
     Active Substance: LINEZOLID
     Dosage: 600 MG, 2X/DAY (FREQ:12 H;ON DAY 85)
     Route: 042
  3. LINEZOLID [Suspect]
     Active Substance: LINEZOLID
     Dosage: 600 MG, 1X/DAY (FROM DAY 138 TO DAY 153)
     Route: 042
  4. LINEZOLID [Suspect]
     Active Substance: LINEZOLID
     Dosage: 600 MG, 2X/DAY (FREQ:12 H)
     Route: 042
  5. LINEZOLID [Suspect]
     Active Substance: LINEZOLID
     Dosage: 400 MG, 1X/DAY (FROM DAY 153 TO DAY 180)
     Route: 042
  6. MEROPENEM [Concomitant]
     Active Substance: MEROPENEM
     Indication: Intervertebral discitis
     Dosage: 1 G, 3X/DAY (FREQ: 8 HRS)
  7. MEROPENEM [Concomitant]
     Active Substance: MEROPENEM
     Indication: Staphylococcal infection
  8. CLINDAMYCIN [Concomitant]
     Active Substance: CLINDAMYCIN
     Indication: Intervertebral discitis
     Dosage: 300 MG, 3X/DAY (FREQ: 8 HRS)
  9. CLINDAMYCIN [Concomitant]
     Active Substance: CLINDAMYCIN
     Indication: Staphylococcal infection
  10. DAPTOMYCIN [Concomitant]
     Active Substance: DAPTOMYCIN
     Dosage: 6 MG/KG (ON DAY 16)
  11. VANCOMYCIN [Concomitant]
     Active Substance: VANCOMYCIN
     Dosage: 1000-1250 MG, TWICE DAILY
  12. TEDIZOLID [Concomitant]
     Active Substance: TEDIZOLID
     Dosage: 200 MG, 1X/DAY

REACTIONS (2)
  - Drug level above therapeutic [Recovered/Resolved]
  - Thrombocytopenia [Recovered/Resolved]
